FAERS Safety Report 4853611-3 (Version None)
Quarter: 2005Q4

REPORT INFORMATION
  Report Type: 
  Country: None (occurrence: None)
  Receive Date: 20051212
  Receipt Date: 20051130
  Transmission Date: 20060501
  Serious: Yes (Other)
  Sender: FDA-Public Use
  Company Number: IT200512000122

PATIENT
  Age: 31 Year
  Sex: Male

DRUGS (5)
  1. HUMATROPE [Suspect]
  2. TESTOSTERONE [Concomitant]
  3. ANABOLIC STEROIDS [Concomitant]
  4. CAFFEINE (CAFFEINE) [Concomitant]
  5. AMFETAMINE (AMFETAMINE) [Concomitant]

REACTIONS (1)
  - HODGKIN'S DISEASE [None]
